FAERS Safety Report 4394129-4 (Version None)
Quarter: 2004Q3

REPORT INFORMATION
  Report Type: 
  Country: None (occurrence: None)
  Receive Date: 20040712
  Receipt Date: 20040628
  Transmission Date: 20050211
  Serious: Yes (Hospitalization)
  Sender: FDA-Public Use
  Company Number: PHBS2004BR08610

PATIENT
  Sex: Female

DRUGS (3)
  1. SANDOSTATIN [Suspect]
     Route: 015
  2. AAS [Concomitant]
     Route: 015
  3. HYDROCHLOROTHIAZIDE [Concomitant]
     Route: 015

REACTIONS (4)
  - DRUG EXPOSURE DURING PREGNANCY [None]
  - PREMATURE BABY [None]
  - RESPIRATORY FAILURE [None]
  - VOMITING [None]
